FAERS Safety Report 6185428-4 (Version None)
Quarter: 2009Q2

REPORT INFORMATION
  Report Type: 
  Country: None (occurrence: None)
  Receive Date: 20090511
  Receipt Date: 20090501
  Transmission Date: 20091009
  Serious: No
  Sender: FDA-Public Use
  Company Number: GB-ASTRAZENECA-2009GB01031

PATIENT
  Sex: Male

DRUGS (1)
  1. SEROQUEL [Suspect]
     Dosage: PHARMACIST NOT SURE IF IR OR XL FORMULATION
     Route: 048
     Dates: start: 20071101

REACTIONS (2)
  - LEUKOPENIA [None]
  - LYMPHOCYTE COUNT DECREASED [None]
